FAERS Safety Report 4416680-0 (Version None)
Quarter: 2004Q3

REPORT INFORMATION
  Report Type: 
  Country: None (occurrence: None)
  Receive Date: 20040802
  Receipt Date: 20040728
  Transmission Date: 20050211
  Serious: Yes (Hospitalization)
  Sender: FDA-Public Use
  Company Number: MK200407-0228-1

PATIENT
  Age: 86 Year
  Sex: Female

DRUGS (1)
  1. TOFRANIL [Suspect]
     Indication: POLLAKIURIA
     Dosage: 10MG, DAILY
     Dates: start: 20040615, end: 20040626

REACTIONS (3)
  - ERYTHEMA [None]
  - RASH PAPULAR [None]
  - URTICARIA [None]
